FAERS Safety Report 6719990-7 (Version None)
Quarter: 2010Q2

REPORT INFORMATION
  Report Type: 
  Country: None (occurrence: None)
  Receive Date: 20100511
  Receipt Date: 20100505
  Transmission Date: 20101027
  Serious: Yes (Life-Threatening, Hospitalization)
  Sender: FDA-Public Use
  Company Number: US-MERCK-1004USA02423

PATIENT
  Age: 36 Year
  Sex: Male

DRUGS (5)
  1. JANUVIA [Suspect]
     Indication: TYPE 2 DIABETES MELLITUS
     Route: 048
     Dates: start: 20100318
  2. JANUVIA [Suspect]
     Route: 048
     Dates: start: 20090101
  3. METFORMIN [Concomitant]
     Route: 048
     Dates: start: 20090701
  4. LOVAZA [Concomitant]
     Route: 048
     Dates: start: 20100201
  5. LEXAPRO [Concomitant]
     Route: 048
     Dates: start: 20001001

REACTIONS (4)
  - CHILLS [None]
  - PHARYNGITIS [None]
  - PYREXIA [None]
  - RASH GENERALISED [None]
